FAERS Safety Report 6073665-9 (Version None)
Quarter: 2009Q1

REPORT INFORMATION
  Report Type: 
  Country: None (occurrence: None)
  Receive Date: 20090211
  Receipt Date: 20090131
  Transmission Date: 20090719
  Serious: Yes (Other)
  Sender: FDA-Public Use
  Company Number: GB-ROCHE-612495

PATIENT
  Sex: Female
  Weight: 135.3 kg

DRUGS (4)
  1. ORLISTAT [Suspect]
     Indication: OBESITY
     Route: 048
     Dates: start: 20090117, end: 20090122
  2. METFORMIN HCL [Concomitant]
     Route: 048
     Dates: start: 20030101
  3. LISINOPRIL [Concomitant]
     Indication: HYPERTENSION
     Route: 048
     Dates: start: 20030101
  4. STATIN [Concomitant]
     Route: 048
     Dates: start: 20030101

REACTIONS (2)
  - AMNESIA [None]
  - UPPER LIMB FRACTURE [None]
